FAERS Safety Report 9781214 (Version 1)
Quarter: 2013Q4

REPORT INFORMATION
  Report Type: Spontaneous
  Country: US (occurrence: US)
  Receive Date: 20131224
  Receipt Date: 20131224
  Transmission Date: 20140711
  Serious: Yes (Other)
  Sender: FDA-Public Use
  Company Number: US-ASTRAZENECA-2013SE92131

PATIENT
  Age: 67 Year
  Sex: Female
  Weight: 54.9 kg

DRUGS (9)
  1. LISINOPRIL [Suspect]
     Indication: HYPERTENSION
     Route: 048
     Dates: start: 201301
  2. PRILOSEC [Suspect]
     Indication: ULCER
     Route: 048
     Dates: start: 201212, end: 201212
  3. BRILINTA [Suspect]
     Indication: STENT PLACEMENT
     Route: 048
     Dates: start: 201301
  4. BRILINTA [Suspect]
     Indication: MYOCARDIAL INFARCTION
     Route: 048
     Dates: start: 201301
  5. ZOCOR GENERIC [Concomitant]
     Dosage: GENERIC
     Dates: end: 201302
  6. METOPROLOL TARTRATE [Concomitant]
     Indication: BLOOD PRESSURE
     Dates: end: 201302
  7. PROTONICS [Concomitant]
     Indication: ULCER
     Route: 048
     Dates: start: 201212
  8. ASPIRIN [Concomitant]
     Indication: MYOCARDIAL INFARCTION
     Route: 048
     Dates: start: 201301
  9. ASPIRIN [Concomitant]
     Indication: STENT PLACEMENT
     Route: 048
     Dates: start: 201301

REACTIONS (8)
  - Myocardial infarction [Recovered/Resolved]
  - Haemorrhage [Recovered/Resolved]
  - Atrial fibrillation [Unknown]
  - Adverse event [Recovered/Resolved]
  - Back pain [Not Recovered/Not Resolved]
  - Dizziness [Recovered/Resolved]
  - Urticaria [Not Recovered/Not Resolved]
  - Fatigue [Not Recovered/Not Resolved]
